FAERS Safety Report 15496824 (Version 3)
Quarter: 2018Q4

REPORT INFORMATION
  Report Type: Spontaneous
  Country: CU (occurrence: CU)
  Receive Date: 20181015
  Receipt Date: 20181031
  Transmission Date: 20190205
  Serious: Yes (Other)
  Sender: FDA-Public Use
  Company Number: CU-ROCHE-2195369

PATIENT
  Age: 70 Year
  Sex: Male
  Weight: 89 kg

DRUGS (8)
  1. PREDNISONE. [Concomitant]
     Active Substance: PREDNISONE
     Dosage: FOR 12 MONTHS
     Route: 065
     Dates: start: 20160712
  2. PREDNISONE. [Concomitant]
     Active Substance: PREDNISONE
     Dosage: FOR 12 MONTHS
     Route: 065
     Dates: start: 20150402
  3. CHLORAMBUCIL [Concomitant]
     Active Substance: CHLORAMBUCIL
     Dosage: FOR 12 MONTHS
     Route: 048
     Dates: start: 20160712
  4. CYCLOPHOSPHAMIDE. [Concomitant]
     Active Substance: CYCLOPHOSPHAMIDE
     Dosage: FOR 12 MONTHS
     Route: 065
     Dates: start: 20150402
  5. ONCOVIN [Concomitant]
     Active Substance: VINCRISTINE SULFATE
     Dosage: FOR 12 MONTHS
     Route: 065
     Dates: start: 20150402
  6. GAZYVA [Suspect]
     Active Substance: OBINUTUZUMAB
     Indication: B-CELL LYMPHOMA
  7. GAZYVA [Suspect]
     Active Substance: OBINUTUZUMAB
     Indication: CHRONIC LYMPHOCYTIC LEUKAEMIA
     Route: 042
     Dates: start: 201708, end: 201808
  8. CHLORAMBUCIL [Concomitant]
     Active Substance: CHLORAMBUCIL
     Route: 048
     Dates: start: 20171107, end: 20180422

REACTIONS (7)
  - Chronic lymphocytic leukaemia recurrent [Unknown]
  - Chills [Unknown]
  - Body temperature increased [Unknown]
  - Diarrhoea [Unknown]
  - B-cell lymphoma [Unknown]
  - Tremor [Unknown]
  - Drug ineffective [Unknown]
